FAERS Safety Report 9001275 (Version 1)
Quarter: 2013Q1

REPORT INFORMATION
  Report Type: Spontaneous
  Country: US (occurrence: US)
  Receive Date: 20130107
  Receipt Date: 20130107
  Transmission Date: 20140127
  Serious: Yes (Hospitalization)
  Sender: FDA-Public Use
  Company Number: US-009507513-1301USA001901

PATIENT
  Age: 34 Year
  Sex: Female

DRUGS (4)
  1. MONTELUKAST SODIUM [Suspect]
  2. AZITHROMYCIN [Suspect]
     Indication: ASTHMA
     Route: 048
  3. PROCATEROL HYDROCHLORIDE [Concomitant]
  4. IBUPROFEN [Concomitant]

REACTIONS (6)
  - Stomatitis [Unknown]
  - Rash [Unknown]
  - Pyrexia [Unknown]
  - Pruritus generalised [Unknown]
  - Pharyngeal erythema [Unknown]
  - Pain [Unknown]
